FAERS Safety Report 6388964-0 (Version None)
Quarter: 2009Q4

REPORT INFORMATION
  Report Type: 
  Country: None (occurrence: None)
  Receive Date: 20091001
  Receipt Date: 20090922
  Transmission Date: 20100525
  Serious: Yes (Hospitalization)
  Sender: FDA-Public Use
  Company Number: ADR28712009

PATIENT
  Age: 80 Year
  Sex: Female

DRUGS (2)
  1. RAMIPRIL [Suspect]
     Dates: end: 20080710
  2. DYAZIDE (1 DF) [Concomitant]

REACTIONS (2)
  - DEHYDRATION [None]
  - RENAL FAILURE ACUTE [None]
